FAERS Safety Report 8564676 (Version 5)
Quarter: 2014Q4

REPORT INFORMATION
  Report Type: Spontaneous
  Country: JP (occurrence: JP)
  Receive Date: 20120516
  Receipt Date: 20141107
  Transmission Date: 20150529
  Serious: Yes (Other)
  Sender: FDA-Public Use
  Company Number: PHHY2012JP040973

PATIENT
  Age: 79 Year
  Sex: Male

DRUGS (10)
  1. FEBUXOSTAT. [Concomitant]
     Active Substance: FEBUXOSTAT
     Indication: HYPERURICAEMIA
     Dosage: 10 MG, UNK
     Route: 048
     Dates: start: 20120417, end: 20120424
  2. CAPTORIL-R [Interacting]
     Active Substance: CAPTOPRIL
     Indication: HYPERTENSION
     Dosage: 18.75 MG, DAILY
     Route: 048
     Dates: end: 20120528
  3. TECHNIS [Concomitant]
     Indication: PRODUCT USED FOR UNKNOWN INDICATION
     Dosage: 60 MG, UNK
     Route: 048
  4. MEXILETINE HYDROCHLORIDE. [Concomitant]
     Active Substance: MEXILETINE HYDROCHLORIDE
     Indication: ARRHYTHMIA
     Dosage: 150 MG, UNK
     Route: 048
  5. DOWNTENSINE [Interacting]
     Active Substance: NITRENDIPINE
     Indication: HYPERTENSION
     Dosage: 10 MG, DAILY
     Route: 048
     Dates: end: 20120528
  6. CRESTOR [Concomitant]
     Active Substance: ROSUVASTATIN CALCIUM
     Indication: HYPERCHOLESTEROLAEMIA
     Dosage: 2.5 MG, UNK
     Route: 048
  7. TASIGNA [Suspect]
     Active Substance: NILOTINIB
     Indication: CHRONIC MYELOID LEUKAEMIA
     Dosage: 600 MG, QD
     Route: 048
     Dates: start: 20120417, end: 20120424
  8. LANSOPRAZOLE. [Concomitant]
     Active Substance: LANSOPRAZOLE
     Indication: GASTROOESOPHAGEAL REFLUX DISEASE
     Dosage: 30 MG, UNK
     Route: 048
  9. TASIGNA [Interacting]
     Active Substance: NILOTINIB
     Dosage: 300 MG, QD
     Route: 048
     Dates: start: 20120530
  10. JUVELA N [Concomitant]
     Active Substance: TOCOPHERYL NICOTINATE, D-.ALPHA.
     Indication: PRODUCT USED FOR UNKNOWN INDICATION
     Dosage: 300 MG, UNK
     Route: 048

REACTIONS (14)
  - Brain natriuretic peptide increased [Recovering/Resolving]
  - Drug interaction [Unknown]
  - White blood cell count increased [Recovering/Resolving]
  - C-reactive protein increased [Recovered/Resolved]
  - Lymphocyte count decreased [Recovering/Resolving]
  - Pyrexia [Recovering/Resolving]
  - Atrial fibrillation [Unknown]
  - Rash erythematous [Recovering/Resolving]
  - Troponin increased [Unknown]
  - Drug level increased [Unknown]
  - Neutrophil count increased [Recovering/Resolving]
  - Atrial flutter [Not Recovered/Not Resolved]
  - Rash [Unknown]
  - Chest pain [Recovered/Resolved]

NARRATIVE: CASE EVENT DATE: 20120423
